FAERS Safety Report 13293837 (Version 2)
Quarter: 2017Q1

REPORT INFORMATION
  Report Type: Spontaneous
  Country: US (occurrence: US)
  Receive Date: 20170303
  Receipt Date: 20170307
  Transmission Date: 20170428
  Serious: Yes (Other)
  Sender: FDA-Public Use
  Company Number: US-CELGENEUS-USA-2015116345

PATIENT

DRUGS (6)
  1. DARATUMUMAB [Suspect]
     Active Substance: DARATUMUMAB
     Dosage: 16 MILLIGRAM/KILOGRAM
     Route: 065
  2. DEXAMETHASONE. [Suspect]
     Active Substance: DEXAMETHASONE
     Dosage: 20 MILLIGRAM
     Route: 065
  3. POMALYST [Suspect]
     Active Substance: POMALIDOMIDE
     Indication: PLASMA CELL MYELOMA
     Dosage: 4 MILLIGRAM
     Route: 048
  4. DARATUMUMAB [Suspect]
     Active Substance: DARATUMUMAB
     Dosage: 16 MILLIGRAM/KILOGRAM
     Route: 065
  5. DARATUMUMAB [Suspect]
     Active Substance: DARATUMUMAB
     Indication: PLASMA CELL MYELOMA
     Dosage: 16 MILLIGRAM/KILOGRAM
     Route: 065
  6. DEXAMETHASONE. [Suspect]
     Active Substance: DEXAMETHASONE
     Indication: PLASMA CELL MYELOMA
     Dosage: 40 MILLIGRAM
     Route: 065

REACTIONS (32)
  - Back pain [Unknown]
  - Febrile neutropenia [Unknown]
  - Cough [Unknown]
  - Dizziness [Unknown]
  - Nasal congestion [Unknown]
  - Throat irritation [Unknown]
  - Hypertension [Unknown]
  - Diarrhoea [Unknown]
  - Pyrexia [Unknown]
  - Vomiting [Unknown]
  - Tremor [Unknown]
  - Arthralgia [Unknown]
  - Headache [Unknown]
  - Thrombocytopenia [Unknown]
  - Lymphopenia [Unknown]
  - Chills [Unknown]
  - Plasma cell myeloma [Unknown]
  - Neutropenia [Unknown]
  - Oedema peripheral [Unknown]
  - Anxiety [Unknown]
  - Nausea [Unknown]
  - Muscle spasms [Unknown]
  - Pruritus [Unknown]
  - Insomnia [Unknown]
  - Fatigue [Unknown]
  - Dyspnoea [Unknown]
  - Constipation [Unknown]
  - Musculoskeletal chest pain [Unknown]
  - Anaemia [Unknown]
  - Leukopenia [Unknown]
  - Upper respiratory tract infection [Unknown]
  - Infusion related reaction [Unknown]
